FAERS Safety Report 7570333-9 (Version None)
Quarter: 2011Q2

REPORT INFORMATION
  Report Type: 
  Country: None (occurrence: None)
  Receive Date: 20110622
  Receipt Date: 20110622
  Transmission Date: 20111010
  Serious: Yes (Hospitalization)
  Sender: FDA-Public Use
  Company Number: None

PATIENT
  Sex: Male
  Weight: 95.4 kg

DRUGS (6)
  1. DOXORUBICIN HYDROCHLORIDE [Suspect]
     Dosage: 80 MG
  2. RITUXIMAB (MOAB C2B8 ANTI CD20 CHIMERIC) [Suspect]
     Dosage: 750 MG
  3. VINCRISTINE SULFATE [Suspect]
     Dosage: 3.2 MG
  4. CYCLOPHOSPHAMIDE [Suspect]
     Dosage: 1500 MG
  5. ETOPOSIDE [Suspect]
     Dosage: 400 MG
  6. PREDNISONE [Suspect]
     Dosage: 1180 MG

REACTIONS (15)
  - HYPOPHOSPHATAEMIA [None]
  - WHITE BLOOD CELL COUNT DECREASED [None]
  - HYPERKALAEMIA [None]
  - MALNUTRITION [None]
  - DELIRIUM [None]
  - MUCOSAL INFLAMMATION [None]
  - NEUTROPENIA [None]
  - HYPOPHAGIA [None]
  - LIP INFECTION [None]
  - CLOSTRIDIUM DIFFICILE COLITIS [None]
  - HYPOALBUMINAEMIA [None]
  - LYMPHOCYTE COUNT DECREASED [None]
  - HYPONATRAEMIA [None]
  - PLATELET COUNT DECREASED [None]
  - ASTHENIA [None]
